FAERS Safety Report 8514738-8 (Version None)
Quarter: 2012Q3

REPORT INFORMATION
  Report Type: 
  Country: None (occurrence: None)
  Receive Date: 20120717
  Receipt Date: 20120712
  Transmission Date: 20120928
  Serious: Yes (Other)
  Sender: FDA-Public Use
  Company Number: US-BAYER-2012-047251

PATIENT
  Age: 54 Year
  Sex: Female
  Weight: 14 kg

DRUGS (15)
  1. BETASERON [Suspect]
     Indication: MULTIPLE SCLEROSIS
     Dosage: 0.25 MG, QOD
     Route: 058
     Dates: start: 19940701
  2. BETASERON [Suspect]
     Dosage: 0.3 MG, QOD
     Route: 058
     Dates: start: 20090115
  3. NITROFURANTOIN [Concomitant]
     Indication: INFECTION PROPHYLAXIS
     Dosage: 100 MG, PRN 1X AFTER INTERCOURSE
  4. CLONAZEPAM [Concomitant]
     Indication: ANXIETY
     Dosage: 0.5 MG, TID PRN
  5. CYMBALTA [Concomitant]
     Indication: DEPRESSION
     Dosage: 60 MG, QD
  6. HYDROCHLOROTHIAZIDE [Concomitant]
     Indication: HYPERTENSION
     Dosage: 25 MG, QD
     Dates: start: 20100401
  7. PROVIGIL [Concomitant]
     Indication: MULTIPLE SCLEROSIS
     Dosage: 100 MG, QD
     Dates: start: 20100101
  8. FISH OIL [Concomitant]
     Dosage: 1200 MG, BID
  9. MULTI-VITAMINS [Concomitant]
     Dosage: 1 DF, QD
  10. PROBIOTICS [Concomitant]
     Dosage: 1 DF, QD
  11. BENAZEPRIL HYDROCHLORIDE [Concomitant]
     Indication: HYPERTENSION
     Dosage: 20 MG, QD
     Dates: start: 20100401
  12. SUMATRIPTAN [Concomitant]
     Indication: MIGRAINE
     Dosage: 25 MG, PRN
  13. BACLOFEN [Concomitant]
     Indication: MULTIPLE SCLEROSIS
     Dosage: 20 MG, BID
  14. LIPITOR [Concomitant]
     Indication: BLOOD CHOLESTEROL INCREASED
     Dosage: 10 MG, QD
  15. TEMAZEPAM [Concomitant]
     Indication: SLEEP DISORDER THERAPY
     Dosage: 15 MG, QD PRN

REACTIONS (4)
  - INJECTION SITE ABSCESS [None]
  - DRUG HYPERSENSITIVITY [None]
  - INJECTION SITE SCAR [None]
  - INJECTION SITE MASS [None]
